FAERS Safety Report 26002344 (Version 1)
Quarter: 2025Q4

REPORT INFORMATION
  Report Type: Spontaneous
  Country: EU (occurrence: EU)
  Receive Date: 20251105
  Receipt Date: 20251105
  Transmission Date: 20260118
  Serious: Yes (Other)
  Sender: SANDOZ
  Company Number: EU-002147023-PHHY2009IT08573

PATIENT
  Age: 5 Month
  Sex: Female

DRUGS (5)
  1. CYCLOSPORINE [Suspect]
     Active Substance: CYCLOSPORINE
     Dosage: 2 MG/KG DAILY
     Route: 065
  2. CYCLOSPORINE [Suspect]
     Active Substance: CYCLOSPORINE
     Indication: Autoimmune haemolytic anaemia
     Dosage: 4 MG/KG, QD
     Route: 065
  3. PREDNISONE [Suspect]
     Active Substance: PREDNISONE
     Indication: Autoimmune haemolytic anaemia
     Dosage: 4 MG/KG, QD
     Route: 065
  4. RITUXIMAB [Suspect]
     Active Substance: RITUXIMAB
     Indication: Autoimmune haemolytic anaemia
     Dosage: 375 MG/M2, CYCLIC
     Route: 065
  5. RITUXIMAB [Suspect]
     Active Substance: RITUXIMAB
     Dosage: UNK (EVERY 4 WEEKLY DOSES)
     Route: 065

REACTIONS (9)
  - Immune thrombocytopenia [Recovering/Resolving]
  - Lymphoproliferative disorder [Unknown]
  - CD4 lymphocytes increased [Unknown]
  - CD8 lymphocytes increased [Unknown]
  - Cushingoid [Recovered/Resolved]
  - Disease recurrence [Unknown]
  - Autoimmune haemolytic anaemia [Recovering/Resolving]
  - Disease progression [Recovering/Resolving]
  - Therapy non-responder [Recovering/Resolving]
